FAERS Safety Report 12369678 (Version 1)
Quarter: 2016Q2

REPORT INFORMATION
  Report Type: Spontaneous
  Country: IN (occurrence: IN)
  Receive Date: 20160516
  Receipt Date: 20160516
  Transmission Date: 20160815
  Serious: Yes (Hospitalization, Other)
  Sender: FDA-Public Use
  Company Number: IN-ACCORD-040341

PATIENT
  Age: 30 Year
  Sex: Female

DRUGS (1)
  1. METHOTREXATE [Suspect]
     Active Substance: METHOTREXATE
     Indication: PRODUCT USED FOR UNKNOWN INDICATION
     Dosage: FOR 5 DAYS?TWO CYCLES GIVEN OVER A PERIOD OF 1 MONTH

REACTIONS (5)
  - Pancytopenia [Unknown]
  - Alopecia [Unknown]
  - Stomatitis [Unknown]
  - Erythema multiforme [Unknown]
  - Hair disorder [Unknown]
